FAERS Safety Report 19424813 (Version 1)
Quarter: 2021Q2

REPORT INFORMATION
  Report Type: Spontaneous
  Country: US (occurrence: US)
  Receive Date: 20210617
  Receipt Date: 20210617
  Transmission Date: 20210717
  Serious: No
  Sender: FDA-Public Use
  Company Number: US-ROCHE-2741739

PATIENT
  Sex: Female

DRUGS (4)
  1. ACTEMRA [Suspect]
     Active Substance: TOCILIZUMAB
     Indication: RHEUMATOID ARTHRITIS
     Route: 042
  2. ACTEMRA [Suspect]
     Active Substance: TOCILIZUMAB
     Indication: SYSTEMIC LUPUS ERYTHEMATOSUS
  3. ACTEMRA [Suspect]
     Active Substance: TOCILIZUMAB
     Indication: SJOGREN^S SYNDROME
  4. ACTEMRA [Suspect]
     Active Substance: TOCILIZUMAB
     Indication: OSTEOARTHRITIS

REACTIONS (3)
  - Skin mass [Not Recovered/Not Resolved]
  - Alopecia [Not Recovered/Not Resolved]
  - Polyp [Not Recovered/Not Resolved]
